FAERS Safety Report 8320491-3 (Version None)
Quarter: 2012Q2

REPORT INFORMATION
  Report Type: 
  Country: None (occurrence: None)
  Receive Date: 20120427
  Receipt Date: 20120427
  Transmission Date: 20120825
  Serious: Yes (Hospitalization)
  Sender: FDA-Public Use
  Company Number: None

PATIENT
  Sex: Male
  Weight: 97.8 kg

DRUGS (1)
  1. COUMADIN [Suspect]

REACTIONS (3)
  - INTERNATIONAL NORMALISED RATIO INCREASED [None]
  - FALL [None]
  - HAEMORRHAGE INTRACRANIAL [None]
